FAERS Safety Report 9303154 (Version 4)
Quarter: 2013Q1

REPORT INFORMATION
  Report Type: Spontaneous
  Country: US (occurrence: None)
  Receive Date: 20130124
  Receipt Date: 20130311
  Transmission Date: 20140127
  Serious: Yes (Disabling, Other)
  Sender: FDA-Public Use
  Company Number: AUR-APL-2013-00646

PATIENT
  Age: 66 Year
  Sex: Female
  Weight: 65.77 kg

DRUGS (6)
  1. CIPROFLOXACIN [Suspect]
     Indication: DIARRHOEA
     Dosage: 1000 MG (500 MG, 2 IN 1 D), ORAL
     Route: 048
     Dates: start: 20110319, end: 20110321
  2. IMITREX (SUMATRIPTAN) [Concomitant]
  3. FLUTICASONE PROPIONATE (FLUTICASONE PROPIONATE) [Concomitant]
  4. CHLORDIAZEPOXIDE-CLINIDIUM (CHLORDIAZEPOXIDE W/CLIDINIUM) [Concomitant]
  5. PROGESTERONE (PROGESTERONE) [Concomitant]
  6. BI-EST [Concomitant]

REACTIONS (6)
  - Drug ineffective [None]
  - Tendon rupture [None]
  - Cystitis [None]
  - Stress [None]
  - Asthenia [None]
  - Activities of daily living impaired [None]
